FAERS Safety Report 16063943 (Version 2)
Quarter: 2019Q2

REPORT INFORMATION
  Report Type: Spontaneous
  Country: JP (occurrence: JP)
  Receive Date: 20190312
  Receipt Date: 20190417
  Transmission Date: 20190711
  Serious: Yes (Hospitalization, Other)
  Sender: FDA-Public Use
  Company Number: JP-JNJFOC-20190312120

PATIENT
  Age: 6 Year
  Sex: Male

DRUGS (11)
  1. FURSULTIAMINE [Concomitant]
     Active Substance: FURSULTIAMINE
     Indication: MITOCHONDRIAL CYTOPATHY
     Route: 048
  2. BIOTIN [Concomitant]
     Active Substance: BIOTIN
     Indication: MITOCHONDRIAL CYTOPATHY
     Route: 048
  3. NEUQUINON [Concomitant]
     Active Substance: UBIDECARENONE
     Indication: MITOCHONDRIAL CYTOPATHY
     Route: 048
  4. MIYA-BM [Concomitant]
     Active Substance: CLOSTRIDIUM BUTYRICUM SPORES STRAIN M-55
     Indication: INFLAMMATORY BOWEL DISEASE
     Route: 048
  5. PENTASA [Concomitant]
     Active Substance: MESALAMINE
     Indication: CONGENITAL ANOMALY
     Route: 048
  6. L CARTIN FF [Concomitant]
     Active Substance: LEVOCARNITINE
     Indication: MITOCHONDRIAL CYTOPATHY
     Route: 048
  7. PRANLUKAST [Concomitant]
     Active Substance: PRANLUKAST
     Indication: RHINITIS
     Route: 048
  8. REMICADE [Suspect]
     Active Substance: INFLIXIMAB
     Indication: CONGENITAL ANOMALY
     Route: 042
     Dates: start: 20160210
  9. REMICADE [Suspect]
     Active Substance: INFLIXIMAB
     Indication: CONGENITAL ANOMALY
     Route: 042
     Dates: start: 20160224
  10. PENTASA [Concomitant]
     Active Substance: MESALAMINE
     Indication: INFLAMMATORY BOWEL DISEASE
     Route: 048
  11. CARBOCISTEINE [Concomitant]
     Active Substance: CARBOCYSTEINE
     Indication: UPPER RESPIRATORY TRACT INFECTION
     Route: 048

REACTIONS (6)
  - Hypophagia [Unknown]
  - Staphylococcal infection [Recovered/Resolved with Sequelae]
  - Product use in unapproved indication [Unknown]
  - Off label use [Unknown]
  - Diarrhoea [Unknown]
  - Cholesteatoma [Recovered/Resolved with Sequelae]

NARRATIVE: CASE EVENT DATE: 201603
